FAERS Safety Report 14830893 (Version 2)
Quarter: 2018Q3

REPORT INFORMATION
  Report Type: Spontaneous
  Country: US (occurrence: US)
  Receive Date: 20180430
  Receipt Date: 20180702
  Transmission Date: 20181010
  Serious: No
  Sender: FDA-Public Use
  Company Number: US-SA-2018SA120833

PATIENT
  Sex: Female

DRUGS (14)
  1. CYANOCOBALAMIN. [Concomitant]
     Active Substance: CYANOCOBALAMIN
     Dosage: 1000 UG,UNK
     Route: 065
  2. PROMETHAZINE [Concomitant]
     Active Substance: PROMETHAZINE\PROMETHAZINE HYDROCHLORIDE
     Dosage: 25 MG,UNK
     Route: 065
  3. SYNTHROID [Concomitant]
     Active Substance: LEVOTHYROXINE SODIUM
     Dosage: 50 UG,UNK
     Route: 065
  4. TIZANIDINE. [Concomitant]
     Active Substance: TIZANIDINE
     Dosage: 4 MG,UNK
     Route: 065
  5. ALBUTEROL [SALBUTAMOL] [Concomitant]
  6. ALREX [ALPRAZOLAM] [Concomitant]
  7. DOXYCYCLINE. [Concomitant]
     Active Substance: DOXYCYCLINE
     Dosage: 50 MG,UNK
  8. PRALUENT [Suspect]
     Active Substance: ALIROCUMAB
     Indication: HYPERLIPIDAEMIA
     Dosage: 75 MG,QOW
     Route: 058
     Dates: start: 20170211
  9. AMOXI?CLAV [Concomitant]
     Active Substance: AMOXICILLIN\CLAVULANATE POTASSIUM
     Dosage: UNK UNK,UNK
     Route: 065
  10. ZOMIG [Concomitant]
     Active Substance: ZOLMITRIPTAN
     Dosage: UNK UNK,UNK
  11. METHYLPRED [Concomitant]
     Active Substance: METHYLPREDNISOLONE
     Dosage: 4 MG,UNK
     Route: 065
  12. ZOLMITRIPTAN. [Concomitant]
     Active Substance: ZOLMITRIPTAN
     Dosage: 5 MG,UNK
     Route: 065
  13. AMOXICILLIN. [Concomitant]
     Active Substance: AMOXICILLIN
     Dosage: UNK UNK,UNK
     Route: 065
  14. NADOLOL. [Concomitant]
     Active Substance: NADOLOL
     Dosage: 20 MG,UNK
     Route: 065

REACTIONS (2)
  - Myalgia [Recovered/Resolved]
  - Hepatic enzyme increased [Recovered/Resolved]
